FAERS Safety Report 8499377-X (Version None)
Quarter: 2012Q3

REPORT INFORMATION
  Report Type: 
  Country: None (occurrence: None)
  Receive Date: 20120710
  Receipt Date: 20120702
  Transmission Date: 20120928
  Serious: Yes (Hospitalization, Other)
  Sender: FDA-Public Use
  Company Number: US-009507513-1202USA02279

PATIENT

DRUGS (6)
  1. LAMICTAL [Concomitant]
     Indication: EPILEPSY
     Route: 048
     Dates: start: 20030101, end: 20090101
  2. CALCIUM (UNSPECIFIED) (+) VITAMIN D (UNSPECIFIED) [Concomitant]
     Dosage: 600/2800
     Route: 048
     Dates: start: 19900101
  3. FOSAMAX [Suspect]
     Dosage: 10 MG, UNK
     Route: 048
     Dates: start: 19980201, end: 20001001
  4. FOSAMAX [Suspect]
     Dosage: 70 MG, UNK
     Route: 048
     Dates: start: 20001001, end: 20080301
  5. MK-9278 [Concomitant]
     Dosage: UNK UNK, QD
     Route: 048
     Dates: start: 20000101
  6. FOSAMAX [Suspect]
     Indication: OSTEOPENIA
     Dosage: 70 MG, UNK
     Route: 048
     Dates: start: 20080401, end: 20110301

REACTIONS (8)
  - CEREBROVASCULAR ACCIDENT [None]
  - BLOOD CHOLESTEROL INCREASED [None]
  - BUNION [None]
  - FRACTURED SACRUM [None]
  - URINARY INCONTINENCE [None]
  - FEMUR FRACTURE [None]
  - LOW TURNOVER OSTEOPATHY [None]
  - BLOOD PRESSURE [None]
